FAERS Safety Report 17676799 (Version 8)
Quarter: 2020Q4

REPORT INFORMATION
  Report Type: Report from Study
  Country: US (occurrence: US)
  Receive Date: 20200416
  Receipt Date: 20201104
  Transmission Date: 20210113
  Serious: Yes (Life-Threatening, Hospitalization)
  Sender: FDA-Public Use
  Company Number: US-JNJFOC-20200415340

PATIENT
  Age: 19 Year
  Sex: Female
  Weight: 64.9 kg

DRUGS (8)
  1. NORETHINDRONE                      /00044901/ [Concomitant]
     Active Substance: NORETHINDRONE
  2. VANCOMYCIN [Concomitant]
     Active Substance: VANCOMYCIN
     Indication: CHOLANGITIS SCLEROSING
     Route: 048
     Dates: start: 201609
  3. MERCAPTOPURINE. [Concomitant]
     Active Substance: MERCAPTOPURINE
     Indication: INFLAMMATORY BOWEL DISEASE
     Route: 048
     Dates: start: 200806, end: 201912
  4. CHOLECALCIFEROL [Concomitant]
     Active Substance: CHOLECALCIFEROL
     Indication: VITAMIN D DEFICIENCY
     Route: 048
     Dates: start: 20090625
  5. INFLIXIMAB, RECOMBINANT [Suspect]
     Active Substance: INFLIXIMAB
     Indication: CROHN^S DISEASE
     Route: 042
     Dates: start: 20110828
  6. MERCAPTOPURINE. [Concomitant]
     Active Substance: MERCAPTOPURINE
     Indication: AUTOIMMUNE HEPATITIS
  7. FERROUS SULFATE. [Concomitant]
     Active Substance: FERROUS SULFATE
  8. URSODIOL. [Concomitant]
     Active Substance: URSODIOL
     Indication: CHOLANGITIS SCLEROSING
     Route: 048
     Dates: start: 20090610

REACTIONS (1)
  - Colon cancer metastatic [Not Recovered/Not Resolved]

NARRATIVE: CASE EVENT DATE: 201910
